FAERS Safety Report 8125027-8 (Version None)
Quarter: 2012Q1

REPORT INFORMATION
  Report Type: 
  Country: None (occurrence: None)
  Receive Date: 20120209
  Receipt Date: 20120202
  Transmission Date: 20120608
  Serious: Yes (Other)
  Sender: FDA-Public Use
  Company Number: DZ-ROCHE-1037591

PATIENT
  Age: 44 Year
  Sex: Female

DRUGS (2)
  1. AVASTIN [Suspect]
     Indication: BREAST CANCER
     Dates: start: 20120111, end: 20120111
  2. TAXOL [Suspect]
     Indication: BREAST CANCER
     Dates: start: 20111120, end: 20120111

REACTIONS (2)
  - RESPIRATORY DISORDER [None]
  - DYSPNOEA [None]
